FAERS Safety Report 21139831 (Version 3)
Quarter: 2022Q3

REPORT INFORMATION
  Report Type: Spontaneous
  Country: US (occurrence: US)
  Receive Date: 20220728
  Receipt Date: 20220921
  Transmission Date: 20221027
  Serious: Yes (Hospitalization, Other)
  Sender: FDA-Public Use
  Company Number: US-BRISTOL-MYERS SQUIBB COMPANY-2022-078587

PATIENT
  Age: 68 Year
  Sex: Female

DRUGS (4)
  1. POMALYST [Suspect]
     Active Substance: POMALIDOMIDE
     Indication: Plasma cell myeloma
     Dosage: DAILY BY MOUTH
     Route: 048
     Dates: start: 20210915
  2. POMALYST [Suspect]
     Active Substance: POMALIDOMIDE
     Indication: Plasma cell leukaemia
     Route: 048
     Dates: start: 202111
  3. POMALYST [Suspect]
     Active Substance: POMALIDOMIDE
     Dosage: DAILY
     Route: 048
     Dates: start: 202209
  4. POMALYST [Suspect]
     Active Substance: POMALIDOMIDE
     Route: 065

REACTIONS (3)
  - Pyrexia [Recovered/Resolved]
  - Pneumonia [Unknown]
  - Full blood count decreased [Unknown]
